FAERS Safety Report 20085998 (Version 2)
Quarter: 2021Q4

REPORT INFORMATION
  Report Type: Other
  Country: RO (occurrence: None)
  Receive Date: 20211118
  Receipt Date: 20211125
  Transmission Date: 20220303
  Serious: Yes (Other)
  Sender: FDA-Public Use
  Company Number: RO-ROCHE-2956960

PATIENT
  Sex: Female
  Weight: 64 kg

DRUGS (2)
  1. MABTHERA [Suspect]
     Active Substance: RITUXIMAB
     Indication: Rheumatoid arthritis
     Route: 042
  2. MABTHERA [Suspect]
     Active Substance: RITUXIMAB
     Indication: Inflammation

REACTIONS (6)
  - Rheumatoid arthritis [Unknown]
  - Urinary tract infection [Unknown]
  - COVID-19 [Unknown]
  - Malaise [Unknown]
  - Bronchitis [Unknown]
  - Diarrhoea [Unknown]
